FAERS Safety Report 5705306-1 (Version None)
Quarter: 2008Q2

REPORT INFORMATION
  Report Type: 
  Country: None (occurrence: None)
  Receive Date: 20080415
  Receipt Date: 20080402
  Transmission Date: 20081010
  Serious: Yes (Other)
  Sender: FDA-Public Use
  Company Number: GB-RANBAXY-2008RR-14007

PATIENT

DRUGS (4)
  1. METFORMIN 500MG TABLETS [Suspect]
     Indication: DIABETES MELLITUS
     Dosage: 1 DF, QD
     Route: 048
     Dates: start: 20070817, end: 20071001
  2. RAMIPRIL [Concomitant]
     Indication: DIABETES MELLITUS
     Dosage: 2.5 MG, UNK
     Route: 048
     Dates: start: 20070716, end: 20070721
  3. SIMVASTATIN [Concomitant]
     Indication: DIABETES MELLITUS
     Dosage: 10 MG, UNK
     Route: 048
     Dates: start: 20070716, end: 20070721
  4. TAMSULOSIN HCL [Concomitant]
     Indication: PROSTATISM
     Dosage: 400 UG, UNK
     Route: 048
     Dates: start: 20050105

REACTIONS (1)
  - GOUT [None]
